FAERS Safety Report 20608332 (Version 1)
Quarter: 2022Q1

REPORT INFORMATION
  Report Type: Spontaneous
  Country: US (occurrence: None)
  Receive Date: 20220317
  Receipt Date: 20220317
  Transmission Date: 20220423
  Serious: Yes (Hospitalization)
  Sender: FDA-Public Use
  Company Number: None

PATIENT
  Age: 58 Year
  Sex: Female

DRUGS (1)
  1. DIMETHYL FUMARATE [Suspect]
     Active Substance: DIMETHYL FUMARATE
     Indication: Multiple sclerosis
     Dosage: FREQUENCY : TWICE A DAY;?
     Route: 048
     Dates: start: 201710

REACTIONS (10)
  - Nausea [None]
  - Feeling abnormal [None]
  - Eating disorder [None]
  - Dizziness [None]
  - Feeling hot [None]
  - Loss of consciousness [None]
  - Dry mouth [None]
  - Weight decreased [None]
  - Ageusia [None]
  - Bone loss [None]

NARRATIVE: CASE EVENT DATE: 20220204
